FAERS Safety Report 23974747 (Version 1)
Quarter: 2024Q2

REPORT INFORMATION
  Report Type: Spontaneous
  Country: US (occurrence: US)
  Receive Date: 20240614
  Receipt Date: 20240614
  Transmission Date: 20240716
  Serious: No
  Sender: FDA-Public Use
  Company Number: US-ELI_LILLY_AND_COMPANY-US202406005295

PATIENT
  Sex: Female

DRUGS (10)
  1. MOUNJARO [Suspect]
     Active Substance: TIRZEPATIDE
     Indication: Blood glucose increased
     Dosage: UNK, UNKNOWN
     Route: 065
     Dates: start: 2022
  2. MOUNJARO [Suspect]
     Active Substance: TIRZEPATIDE
     Indication: Blood glucose increased
     Dosage: UNK, UNKNOWN
     Route: 065
     Dates: start: 2022
  3. MOUNJARO [Suspect]
     Active Substance: TIRZEPATIDE
     Indication: Blood glucose increased
     Dosage: UNK, UNKNOWN
     Route: 065
     Dates: start: 2022
  4. MOUNJARO [Suspect]
     Active Substance: TIRZEPATIDE
     Indication: Blood glucose increased
     Dosage: 10 MG, UNKNOWN
     Route: 065
  5. MOUNJARO [Suspect]
     Active Substance: TIRZEPATIDE
     Indication: Blood glucose increased
     Dosage: 10 MG, UNKNOWN
     Route: 065
  6. MOUNJARO [Suspect]
     Active Substance: TIRZEPATIDE
     Indication: Blood glucose increased
     Dosage: 10 MG, UNKNOWN
     Route: 065
  7. MOUNJARO [Suspect]
     Active Substance: TIRZEPATIDE
     Indication: Blood glucose increased
     Dosage: 10 MG, UNKNOWN
     Route: 065
  8. TRESIBA [Suspect]
     Active Substance: INSULIN DEGLUDEC
     Indication: Blood glucose increased
     Dosage: 20 U, UNKNOWN
     Route: 065
  9. TRESIBA [Suspect]
     Active Substance: INSULIN DEGLUDEC
     Dosage: 8 U, UNKNOWN (AT NIGHT)
     Route: 065
  10. TRESIBA [Suspect]
     Active Substance: INSULIN DEGLUDEC
     Dosage: 9 U, UNKNOWN (AT NIGHT)
     Route: 065

REACTIONS (5)
  - Glycosylated haemoglobin increased [Unknown]
  - Blood glucose increased [Unknown]
  - Nausea [Unknown]
  - Constipation [Unknown]
  - Blood glucose decreased [Unknown]
